FAERS Safety Report 15456576 (Version 1)
Quarter: 2018Q3

REPORT INFORMATION
  Report Type: Spontaneous
  Country: US (occurrence: US)
  Receive Date: 20180928
  Receipt Date: 20180928
  Transmission Date: 20181010
  Serious: Yes (Hospitalization)
  Sender: FDA-Public Use
  Company Number: None

PATIENT
  Age: 62 Year
  Sex: Male

DRUGS (10)
  1. SYMBICORT 160?4.5 [Concomitant]
  2. FLOVENT 110MCG [Concomitant]
  3. PULMICORT 180MCG [Concomitant]
  4. PULMOZYME [Suspect]
     Active Substance: DORNASE ALFA
     Indication: CYSTIC FIBROSIS
     Route: 048
     Dates: start: 20160123
  5. COMBIVENT [Concomitant]
     Active Substance: ALBUTEROL SULFATE\IPRATROPIUM BROMIDE
  6. ALBUTEROL 2MG [Concomitant]
  7. CREON 36000UNITS [Concomitant]
  8. GABAPENTIN 300MG [Concomitant]
     Active Substance: GABAPENTIN
  9. SYMDEKO [Suspect]
     Active Substance: IVACAFTOR\TEZACAFTOR
     Indication: CYSTIC FIBROSIS
     Dosage: 150 MG; 100/150 IN AM 150PM
     Route: 048
     Dates: start: 20180411
  10. HYPERSAL 7% [Concomitant]

REACTIONS (1)
  - Cystic fibrosis [None]

NARRATIVE: CASE EVENT DATE: 20180920
